FAERS Safety Report 5695671-6 (Version None)
Quarter: 2008Q2

REPORT INFORMATION
  Report Type: 
  Country: None (occurrence: None)
  Receive Date: 20080407
  Receipt Date: 20080307
  Transmission Date: 20081010
  Serious: No
  Sender: FDA-Public Use
  Company Number: US-BAYER-200816956NA

PATIENT
  Sex: Female

DRUGS (1)
  1. YAZ [Suspect]
     Indication: OVARIAN CYST
     Route: 048
     Dates: start: 20071201

REACTIONS (2)
  - DRUG DOSE OMISSION [None]
  - MENSTRUATION DELAYED [None]
